FAERS Safety Report 13398539 (Version 1)
Quarter: 2017Q2

REPORT INFORMATION
  Report Type: Report from Study
  Country: US (occurrence: US)
  Receive Date: 20170403
  Receipt Date: 20170403
  Transmission Date: 20170830
  Serious: Yes (Death, Hospitalization)
  Sender: FDA-Public Use
  Company Number: PHHO2017US001925

PATIENT
  Age: 60 Year
  Sex: Female
  Weight: 69.8 kg

DRUGS (3)
  1. GSK1120212 [Suspect]
     Active Substance: TRAMETINIB
     Dosage: 1.5 UNK, UNK
     Route: 048
     Dates: start: 20150820
  2. GSK1120212 [Suspect]
     Active Substance: TRAMETINIB
     Dosage: 1.5 MG, UNK
     Route: 048
     Dates: end: 20150817
  3. GSK1120212 [Suspect]
     Active Substance: TRAMETINIB
     Indication: TRIPLE NEGATIVE BREAST CANCER
     Dosage: 52 MG, UNK
     Route: 048
     Dates: start: 20150624, end: 20150715

REACTIONS (8)
  - Hyperglycaemia [Recovered/Resolved]
  - Cardiac arrest [Recovered/Resolved]
  - Death [Fatal]
  - Hypoglycaemia [Recovered/Resolved]
  - Rhabdomyolysis [Unknown]
  - Hypertension [Recovered/Resolved]
  - Renal failure [Recovered/Resolved]
  - Hypersensitivity [Recovered/Resolved]

NARRATIVE: CASE EVENT DATE: 20150715
